FAERS Safety Report 11273419 (Version 1)
Quarter: 2015Q2

REPORT INFORMATION
  Report Type: Spontaneous
  Country: US (occurrence: None)
  Receive Date: 20150625
  Receipt Date: 20150625
  Transmission Date: 20150821
  Serious: No
  Sender: FDA-Public Use
  Company Number: A-US2015-113988

PATIENT
  Age: 65 Year
  Sex: Female
  Weight: 66 kg

DRUGS (3)
  1. ADCIRCA [Concomitant]
     Active Substance: TADALAFIL
  2. OPSUMIT [Suspect]
     Active Substance: MACITENTAN
     Indication: PULMONARY ARTERIAL HYPERTENSION
     Route: 048
     Dates: start: 20141023
  3. TYVASO [Suspect]
     Active Substance: TREPROSTINIL
     Indication: PULMONARY ARTERIAL HYPERTENSION
     Dosage: 18-54 MCG, QID, RESPIRATORY
     Route: 055
     Dates: start: 20130318

REACTIONS (8)
  - Vaginal lesion [None]
  - Vulvovaginal pruritus [None]
  - Headache [None]
  - Vitamin D decreased [None]
  - Nasal dryness [None]
  - Urinary tract infection [None]
  - Drug dose omission [None]
  - Dysuria [None]

NARRATIVE: CASE EVENT DATE: 2014
